FAERS Safety Report 5144610-5 (Version None)
Quarter: 2006Q4

REPORT INFORMATION
  Report Type: 
  Country: None (occurrence: None)
  Receive Date: 20061106
  Receipt Date: 20060828
  Transmission Date: 20070319
  Serious: Yes (Hospitalization)
  Sender: FDA-Public Use
  Company Number: CA-MERCK-0608CAN00150

PATIENT
  Age: 66 Year
  Sex: Female
  Weight: 53 kg

DRUGS (10)
  1. ZETIA [Suspect]
     Indication: LIPIDS INCREASED
     Route: 048
  2. AMLODIPINE BESYLATE [Concomitant]
     Route: 065
  3. TIOTROPIUM BROMIDE [Concomitant]
     Route: 065
  4. CALCIUM CARBONATE AND ETIDRONATE SODIUM [Concomitant]
     Route: 065
  5. VALSARTAN [Concomitant]
     Route: 065
  6. ALBUTEROL [Concomitant]
     Route: 065
  7. MULTI-VITAMINS [Concomitant]
     Route: 065
  8. UREA [Concomitant]
     Route: 065
  9. FLUTICASONE PROPIONATE [Concomitant]
     Route: 065
  10. FUROSEMIDE [Concomitant]
     Route: 065

REACTIONS (6)
  - AORTIC VALVE SCLEROSIS [None]
  - ELECTROCARDIOGRAM T WAVE ABNORMAL [None]
  - HEPATITIS [None]
  - HYPERTENSION [None]
  - MITRAL VALVE INCOMPETENCE [None]
  - SYNCOPE [None]
